FAERS Safety Report 6361954-X (Version None)
Quarter: 2009Q3

REPORT INFORMATION
  Report Type: 
  Country: None (occurrence: None)
  Receive Date: 20090821
  Receipt Date: 20090714
  Transmission Date: 20100115
  Serious: No
  Sender: FDA-Public Use
  Company Number: 8049047

PATIENT
  Age: 56 Year
  Sex: Female

DRUGS (1)
  1. CIMZIA [Suspect]
     Dosage: SC
     Route: 058
     Dates: start: 20090615

REACTIONS (5)
  - DYSPEPSIA [None]
  - INCREASED APPETITE [None]
  - INJECTION SITE ERYTHEMA [None]
  - NIGHT SWEATS [None]
  - TREMOR [None]
